FAERS Safety Report 6958834-5 (Version None)
Quarter: 2010Q3

REPORT INFORMATION
  Report Type: 
  Country: None (occurrence: None)
  Receive Date: 20100817
  Receipt Date: 20100205
  Transmission Date: 20110219
  Serious: No
  Sender: FDA-Public Use
  Company Number: 20097344

PATIENT
  Age: 66 Year
  Sex: Female

DRUGS (3)
  1. LIORESAL [Suspect]
     Indication: MUSCLE SPASTICITY
     Dosage: 406.27 MCG, DAILY, INTRATHECAL
     Route: 037
  2. FENTANYL CITRATE [Concomitant]
  3. PRIALT [Concomitant]

REACTIONS (5)
  - MUSCLE SPASTICITY [None]
  - OVERDOSE [None]
  - PAIN [None]
  - SOMNOLENCE [None]
  - UNDERDOSE [None]
